FAERS Safety Report 4543324-X (Version None)
Quarter: 2004Q4

REPORT INFORMATION
  Report Type: 
  Country: None (occurrence: None)
  Receive Date: 20041229
  Receipt Date: 20041216
  Transmission Date: 20050328
  Serious: Yes (Hospitalization, Congenital Anomaly)
  Sender: FDA-Public Use
  Company Number: 8008359

PATIENT
  Sex: Female
  Weight: 1.895 kg

DRUGS (12)
  1. KEPPRA [Suspect]
     Indication: EPILEPSY
     Dosage: 500 MG 2/D TRP
     Dates: start: 20040319, end: 20040701
  2. KEPPRA [Suspect]
     Indication: EPILEPSY
     Dosage: 500 MG 1/D; TRP
     Dates: start: 20040701, end: 20041105
  3. KEPPRA [Suspect]
     Indication: EPILEPSY
     Dosage: 500 MG 1/D; TRP
     Dates: start: 20041105
  4. LAMICTAL [Suspect]
     Indication: EPILEPSY
     Dosage: 50 MG 2/D; TRP
     Dates: start: 20040319
  5. TEGRETOL [Suspect]
     Indication: EPILEPSY
     Dosage: 400 MG 2/D; TRP
     Dates: start: 20040319, end: 20041105
  6. TEGRETOL [Suspect]
     Dosage: 400 MG 2/D; TRM
     Dates: start: 20041105
  7. MEDROL [Suspect]
     Indication: BRAIN NEOPLASM
     Dosage: 32 MG/D; TRP
     Dates: start: 20040407
  8. MEDROL [Suspect]
     Indication: BRAIN NEOPLASM
     Dosage: 16 MG/D; TRP
  9. LEVONORGESTREL AND ETHINYL ESTRADIOL [Suspect]
     Indication: ORAL CONTRACEPTION
     Dosage: NI; TRP
     Dates: start: 20040319, end: 20040401
  10. SOLUPRED [Concomitant]
  11. SPECIAFOLDINE [Concomitant]
  12. ZOLOFT [Concomitant]

REACTIONS (4)
  - CAESAREAN SECTION [None]
  - DRUG EXPOSURE DURING PREGNANCY [None]
  - FOETAL GROWTH RETARDATION [None]
  - PREMATURE BABY [None]
